FAERS Safety Report 5942602-7 (Version None)
Quarter: 2008Q4

REPORT INFORMATION
  Report Type: 
  Country: None (occurrence: None)
  Receive Date: 20081103
  Receipt Date: 20081029
  Transmission Date: 20090506
  Serious: Yes (Death)
  Sender: FDA-Public Use
  Company Number: MSTR-NO-0810S-0112

PATIENT
  Age: 59 Year
  Sex: Female

DRUGS (2)
  1. METASTRON [Suspect]
     Indication: METASTATIC PAIN
     Dosage: 2.3 ML, SINGLE DOSE, I.V.
     Route: 042
     Dates: start: 20080319, end: 20080319
  2. METASTRON [Suspect]
     Indication: PHOTON RADIATION THERAPY TO BONE
     Dosage: 2.3 ML, SINGLE DOSE, I.V.
     Route: 042
     Dates: start: 20080319, end: 20080319

REACTIONS (1)
  - DEATH [None]
